FAERS Safety Report 6244449-3 (Version None)
Quarter: 2009Q2

REPORT INFORMATION
  Report Type: 
  Country: None (occurrence: None)
  Receive Date: 20090623
  Receipt Date: 20090612
  Transmission Date: 20091009
  Serious: Yes (Other)
  Sender: FDA-Public Use
  Company Number: 301627

PATIENT
  Age: 43 Year
  Sex: Female

DRUGS (3)
  1. METHOTREXATE [Suspect]
     Indication: RHEUMATOID ARTHRITIS
  2. HYDROXYCHLOROQUINE SULFATE [Concomitant]
  3. SULFASALAZINE [Concomitant]

REACTIONS (4)
  - CERVIX CARCINOMA [None]
  - CONDITION AGGRAVATED [None]
  - GLOMERULAR FILTRATION RATE DECREASED [None]
  - RHEUMATOID ARTHRITIS [None]
